FAERS Safety Report 25074183 (Version 1)
Quarter: 2025Q1

REPORT INFORMATION
  Report Type: Spontaneous
  Country: US (occurrence: None)
  Receive Date: 20250313
  Receipt Date: 20250313
  Transmission Date: 20250408
  Serious: No
  Sender: FDA-CTU
  Company Number: None

PATIENT
  Age: 81 Year
  Sex: Female
  Weight: 60.4 kg

DRUGS (3)
  1. DARATUMUMAB [Suspect]
     Active Substance: DARATUMUMAB
     Dates: end: 20250226
  2. DEXAMETHASONE [Suspect]
     Active Substance: DEXAMETHASONE
     Dates: end: 20250226
  3. LENALIDOMIDE [Suspect]
     Active Substance: LENALIDOMIDE
     Dates: end: 20250303

REACTIONS (3)
  - Fatigue [None]
  - Dizziness [None]
  - Neutropenia [None]

NARRATIVE: CASE EVENT DATE: 20250303
